FAERS Safety Report 9462557 (Version 1)
Quarter: 2013Q3

REPORT INFORMATION
  Report Type: Spontaneous
  Country: US (occurrence: US)
  Receive Date: 20130816
  Receipt Date: 20130816
  Transmission Date: 20140515
  Serious: Yes (Death, Other)
  Sender: FDA-Public Use
  Company Number: US-009507513-2007-152786-NL

PATIENT
  Sex: Female
  Weight: 68 kg

DRUGS (1)
  1. NUVARING [Suspect]
     Indication: CONTRACEPTION
     Dosage: DOSE TEXT: 3 WEEKS INSERTED/ ONE WEEK OUT, CONTINUING: NA
     Route: 067
     Dates: start: 200508, end: 20060502

REACTIONS (4)
  - Cardiac arrest [Not Recovered/Not Resolved]
  - Pulmonary embolism [Fatal]
  - Asthma [Unknown]
  - Syncope [Not Recovered/Not Resolved]
